FAERS Safety Report 10145220 (Version 1)
Quarter: 2014Q2

REPORT INFORMATION
  Report Type: Spontaneous
  Country: US (occurrence: US)
  Receive Date: 20140501
  Receipt Date: 20140501
  Transmission Date: 20141212
  Serious: No
  Sender: FDA-Public Use
  Company Number: US-BIOGENIDEC-2014BI037024

PATIENT
  Age: 43 Year
  Sex: Female

DRUGS (4)
  1. TECFIDERA [Suspect]
     Indication: MULTIPLE SCLEROSIS
     Route: 048
     Dates: start: 20140116
  2. AMBIENT [Concomitant]
  3. BACLOFEN [Concomitant]
  4. LEXAPRO [Concomitant]

REACTIONS (3)
  - Weight increased [Unknown]
  - Nausea [Unknown]
  - Abdominal pain upper [Unknown]
